FAERS Safety Report 4780063-4 (Version None)
Quarter: 2005Q3

REPORT INFORMATION
  Report Type: 
  Country: None (occurrence: None)
  Receive Date: 20050914
  Receipt Date: 20050427
  Transmission Date: 20060218
  Serious: Yes (Hospitalization)
  Sender: FDA-Public Use
  Company Number: 163-20785-05050005

PATIENT
  Age: 81 Year
  Sex: Male

DRUGS (2)
  1. THALOMID [Suspect]
     Indication: MULTIPLE MYELOMA
     Dosage: 50 MG, DAILY, ORAL
     Route: 048
     Dates: start: 20050103, end: 20050111
  2. PREDNISONE TAB [Concomitant]

REACTIONS (5)
  - CONFUSIONAL STATE [None]
  - MEMORY IMPAIRMENT [None]
  - PARANOIA [None]
  - PSYCHOTIC DISORDER [None]
  - STEREOTYPY [None]
